FAERS Safety Report 5306112-2 (Version None)
Quarter: 2007Q2

REPORT INFORMATION
  Report Type: 
  Country: None (occurrence: None)
  Receive Date: 20070424
  Receipt Date: 20070205
  Transmission Date: 20071010
  Serious: No
  Sender: FDA-Public Use
  Company Number: US-BRISTOL-MYERS SQUIBB COMPANY-13669148

PATIENT
  Age: 31 Year
  Sex: Female
  Weight: 71 kg

DRUGS (8)
  1. PACLITAXEL [Suspect]
     Indication: OVARIAN CANCER
     Dates: start: 20070125, end: 20070125
  2. PARAPLATIN [Suspect]
     Indication: OVARIAN CANCER
     Dates: start: 20070125, end: 20070125
  3. PREMARIN [Concomitant]
  4. TYLENOL [Concomitant]
  5. DECADRON [Concomitant]
  6. ZOFRAN [Concomitant]
     Dates: start: 20070126, end: 20070128
  7. ATIVAN [Concomitant]
  8. BACTROBAN [Concomitant]

REACTIONS (1)
  - RASH [None]
